FAERS Safety Report 10154038 (Version 1)
Quarter: 2014Q2

REPORT INFORMATION
  Report Type: Spontaneous
  Country: US (occurrence: None)
  Receive Date: 20140502
  Receipt Date: 20140502
  Transmission Date: 20141212
  Serious: Yes (Hospitalization)
  Sender: FDA-Public Use
  Company Number: UTC-046059

PATIENT
  Age: 51 Year
  Sex: Female
  Weight: 65.77 kg

DRUGS (2)
  1. REMODULIN (10 MILLIGRAM/MILLILITERS, INJECTION FOR INFUSION) (TREPROSTINIL SODIUM) [Suspect]
     Indication: PULMONARY ARTERIAL HYPERTENSION
     Route: 058
     Dates: start: 20130213
  2. VELETRI (EPOPROSTENOL) [Concomitant]

REACTIONS (4)
  - Dyspnoea [None]
  - Influenza [None]
  - Cardiac failure [None]
  - Fluid retention [None]
